FAERS Safety Report 5841119-8 (Version None)
Quarter: 2008Q3

REPORT INFORMATION
  Report Type: 
  Country: None (occurrence: None)
  Receive Date: 20080807
  Receipt Date: 20080807
  Transmission Date: 20090109
  Serious: Yes (Death)
  Sender: FDA-Public Use
  Company Number: None

PATIENT
  Age: 69 Year
  Sex: Female
  Weight: 75.2971 kg

DRUGS (2)
  1. METHOTREXATE SODIUM [Suspect]
     Indication: RHEUMATOID ARTHRITIS
     Dosage: 7.5 MG WEEKLY SQ
     Route: 058
  2. ETANERCEPT 50MG/ML AMGEN WYETH [Suspect]
     Indication: RHEUMATOID ARTHRITIS
     Dosage: 50 MG WEEKLY SQ
     Route: 058

REACTIONS (5)
  - ARTERIOSCLEROSIS [None]
  - ARTHRITIS [None]
  - CARDIOMEGALY [None]
  - CYSTITIS HAEMORRHAGIC [None]
  - KYPHOSCOLIOSIS [None]
